FAERS Safety Report 13893679 (Version 4)
Quarter: 2017Q4

REPORT INFORMATION
  Report Type: Report from Study
  Country: US (occurrence: US)
  Receive Date: 20170822
  Receipt Date: 20171017
  Transmission Date: 20180320
  Serious: Yes (Hospitalization, Other)
  Sender: FDA-Public Use
  Company Number: US-PFIZER INC-2017339097

PATIENT
  Age: 8 Year
  Sex: Male
  Weight: 26 kg

DRUGS (13)
  1. APRESOLINE HYDROCHLORIDE [Suspect]
     Active Substance: HYDRALAZINE HYDROCHLORIDE
     Dosage: TO BE MADE INTO AN ORAL SOLUTION 12.5MG TID
     Route: 048
  2. MICAFUNGIN [Suspect]
     Active Substance: MICAFUNGIN
     Dosage: 78MG PER DOSE, 3 TIMES PER WEEK
  3. OSCAL [Concomitant]
     Active Substance: CALCIUM CARBONATE
     Dosage: 500 MG CALCIUM (1250 MG) TABLET, TAKE 1 TAB 2 (TWO) TIMES DAILY
     Route: 048
  4. NORVASC [Suspect]
     Active Substance: AMLODIPINE BESYLATE
     Dosage: TAKE 1 TAB BY MOUTH 2 (TWO) TIMES DAILY.
     Route: 048
  5. INOTUZUMAB OZOGAMICIN [Suspect]
     Active Substance: INOTUZUMAB OZOGAMICIN
     Indication: ACUTE LYMPHOCYTIC LEUKAEMIA
     Dosage: 0.42 MG, CYCLIC 1, DAYS 1, 8, 15
     Route: 042
     Dates: start: 20170629, end: 20170714
  6. DEXAMETHASONE. [Suspect]
     Active Substance: DEXAMETHASONE
     Dosage: 0.5 MG, QD
  7. LASIX [Suspect]
     Active Substance: FUROSEMIDE
     Dosage: 2 ML, SOLUTION, ONCE A DAY
     Route: 048
  8. VALACYCLOVIR [Suspect]
     Active Substance: VALACYCLOVIR HYDROCHLORIDE
     Dosage: 525 MG, BID
  9. METHADONE [Suspect]
     Active Substance: METHADONE HYDROCHLORIDE
     Dosage: TAPER, 0.75 MG, BID
  10. REFRESH [Concomitant]
     Active Substance: UNSPECIFIED INGREDIENT
     Dosage: CARBOXYMETHYL CELLULOS,1% OPHTHALMIC SOLUTION, PLACE 1 DROP INTO THE RIGHT EYE 4 (FOUR) TIMES DAILY
     Route: 047
  11. VASOTEC [Suspect]
     Active Substance: ENALAPRIL MALEATE
     Dosage: 1 TAB, DAILY
     Route: 048
  12. LEVAQUIN [Suspect]
     Active Substance: LEVOFLOXACIN
     Dosage: 250 MG/10 ML SOLUTION, TAKE 10.8 ML DAILY
     Route: 048
  13. MORPHINE SULFATE. [Suspect]
     Active Substance: MORPHINE SULFATE
     Indication: PAIN
     Dosage: 10 MG/5 ML SOLUTION, TAKE 4.5 ML EVERY 4 HOURS AS NEEDED
     Route: 048

REACTIONS (12)
  - Alanine aminotransferase increased [Recovered/Resolved with Sequelae]
  - Anaemia [Not Recovered/Not Resolved]
  - White blood cell count decreased [Not Recovered/Not Resolved]
  - Neutrophil count decreased [Not Recovered/Not Resolved]
  - Febrile neutropenia [Recovering/Resolving]
  - Febrile neutropenia [Recovering/Resolving]
  - Device related infection [Recovering/Resolving]
  - Platelet count decreased [Not Recovered/Not Resolved]
  - Hypokalaemia [Recovering/Resolving]
  - Hypomagnesaemia [Recovering/Resolving]
  - Hypophosphataemia [Recovering/Resolving]
  - Hyponatraemia [Recovered/Resolved]

NARRATIVE: CASE EVENT DATE: 20170630
